FAERS Safety Report 9510728 (Version 1)
Quarter: 2013Q3

REPORT INFORMATION
  Report Type: Report from Study
  Country: US (occurrence: US)
  Receive Date: 20130910
  Receipt Date: 20130910
  Transmission Date: 20140515
  Serious: Yes (Death)
  Sender: FDA-Public Use
  Company Number: US-ROCHE-1271776

PATIENT
  Age: 61 Year
  Sex: Female

DRUGS (2)
  1. HERCEPTIN [Suspect]
     Indication: BREAST CANCER METASTATIC
     Dosage: 1L DOSE EVERY3
     Route: 065
  2. TAXOTERE [Concomitant]
     Dosage: 1L DOSE
     Route: 065

REACTIONS (2)
  - Death [Fatal]
  - Disease progression [Unknown]
